FAERS Safety Report 9409419 (Version 2)
Quarter: 2013Q3

REPORT INFORMATION
  Report Type: Report from Study
  Country: FI (occurrence: FI)
  Receive Date: 20130719
  Receipt Date: 20130731
  Transmission Date: 20140515
  Serious: Yes (Life-Threatening, Hospitalization)
  Sender: FDA-Public Use
  Company Number: FI-GENZYME-CAMP-1003027

PATIENT
  Age: 64 Year
  Sex: Female

DRUGS (19)
  1. CAMPATH [Suspect]
     Indication: T-CELL LYMPHOMA
     Dosage: 30 MG, ONCE
     Route: 058
     Dates: start: 20130628, end: 20130628
  2. CYCLOPHOSPHAMIDE [Suspect]
     Indication: T-CELL LYMPHOMA
     Dosage: 1200 MG, ONCE
     Route: 042
     Dates: start: 20130628, end: 20130628
  3. DOXORUBICINE [Suspect]
     Indication: T-CELL LYMPHOMA
     Dosage: 80 MG, ONCE
     Route: 042
     Dates: start: 20130628, end: 20130628
  4. VINCRISTINE [Suspect]
     Indication: T-CELL LYMPHOMA
     Dosage: 1 AND 2 MG, QD (FOR 5 DAYS)
     Route: 042
     Dates: start: 20130624, end: 20130628
  5. PREDNISONE [Suspect]
     Indication: T-CELL LYMPHOMA
     Dosage: 100 MG, QD (FOR 9 DAYS)
     Route: 048
     Dates: start: 20130624, end: 20130702
  6. FILGRASTIM [Suspect]
     Indication: T-CELL LYMPHOMA
     Dosage: 6 MG, QD
     Route: 058
     Dates: start: 20130701, end: 20130701
  7. ESTRADIOL [Concomitant]
     Indication: MENOPAUSAL SYMPTOMS
     Dosage: 50 MCG, 2X/W
     Route: 062
     Dates: start: 20111016
  8. ESTRADIOL [Concomitant]
     Dosage: 10 MCG, 2X/W
     Route: 067
     Dates: start: 20111016
  9. VALACICLOVIR [Concomitant]
     Indication: INFECTION PROPHYLAXIS
     Dosage: 500 MG, BID
     Route: 048
     Dates: start: 20130628
  10. FLUCONAZOLE [Concomitant]
     Indication: INFECTION PROPHYLAXIS
     Dosage: 100 MG, QD
     Route: 048
     Dates: start: 20130628
  11. TRIMETOPRIM + SULFAMETOXAZOL [Concomitant]
     Indication: INFECTION PROPHYLAXIS
     Dosage: 480 MG (80/400 MG), QD
     Route: 048
     Dates: start: 20130628
  12. METOCLOPRAMIDE [Concomitant]
     Indication: PROPHYLAXIS OF NAUSEA AND VOMITING
     Dosage: 2 DF, UNK (TOOK ONLY TWO TABLETS)
     Route: 065
     Dates: start: 20130628
  13. PANTOPRAZOLE [Concomitant]
     Indication: GASTROINTESTINAL TRACT IRRITATION
     Dosage: 40 MG, QD
     Route: 048
     Dates: start: 201301
  14. VITAMIN B [Concomitant]
     Indication: VITAMIN SUPPLEMENTATION
     Dosage: UNK
     Route: 048
  15. RISEDRONIC ACID [Concomitant]
     Indication: OSTEOPOROSIS
     Dosage: 35 MG, 1X/W
     Route: 048
  16. CALCIUM [Concomitant]
     Indication: VITAMIN SUPPLEMENTATION
     Dosage: 500 MG/ 400 IU, QD
     Route: 048
     Dates: start: 20111016
  17. MELATONIN [Concomitant]
     Indication: INITIAL INSOMNIA
     Dosage: 3 MG, UNK (1-2 TABLETS DAILY)
     Route: 048
  18. PARACETAMOL [Concomitant]
     Indication: PAIN
     Dosage: 500 MG, UNK (1-2 TABLETS DAILY, ONLY WHEN NECESSARY)
     Route: 048
  19. NYSTATIN [Concomitant]
     Indication: ORAL FUNGAL INFECTION
     Dosage: 1 ML, QID
     Route: 048
     Dates: start: 20130701, end: 20130704

REACTIONS (2)
  - Incoherent [Unknown]
  - Hyponatraemia [Recovered/Resolved]
